FAERS Safety Report 24066809 (Version 1)
Quarter: 2024Q3

REPORT INFORMATION
  Report Type: Spontaneous
  Country: CA (occurrence: CA)
  Receive Date: 20240709
  Receipt Date: 20240709
  Transmission Date: 20241017
  Serious: Yes (Other)
  Sender: BRISTOL MYERS SQUIBB
  Company Number: CA-BRISTOL-MYERS SQUIBB COMPANY-2024-108587

PATIENT
  Age: 25 Year
  Sex: Female

DRUGS (7)
  1. ATAZANAVIR SULFATE [Suspect]
     Active Substance: ATAZANAVIR SULFATE
     Indication: HIV infection
  2. METHADOSE SUGAR-FREE [Concomitant]
     Active Substance: METHADONE HYDROCHLORIDE
     Indication: Drug abuse
     Dosage: SOLUTION ORAL
     Route: 048
  3. ABACAVIR [Concomitant]
     Active Substance: ABACAVIR
     Indication: HIV infection
  4. ALCOHOL [Concomitant]
     Active Substance: ALCOHOL
     Indication: Product used for unknown indication
  5. LAMIVUDINE [Concomitant]
     Active Substance: LAMIVUDINE
     Indication: HIV infection
  6. METHAMPHETAMINE [Concomitant]
     Active Substance: METHAMPHETAMINE
     Indication: Product used for unknown indication
  7. RITONAVIR [Concomitant]
     Active Substance: RITONAVIR
     Indication: HIV infection

REACTIONS (1)
  - Drug abuse [Unknown]
